FAERS Safety Report 20495947 (Version 3)
Quarter: 2022Q3

REPORT INFORMATION
  Report Type: Spontaneous
  Country: JP (occurrence: JP)
  Receive Date: 20220221
  Receipt Date: 20220715
  Transmission Date: 20221027
  Serious: No
  Sender: FDA-Public Use
  Company Number: JP-GLAXOSMITHKLINE-JP2022JPN027687

PATIENT

DRUGS (1)
  1. SOTROVIMAB [Suspect]
     Active Substance: SOTROVIMAB
     Indication: COVID-19
     Dosage: UNKNOWN WHICH DOSE, 50 ML OR 100 ML, WAS GIVEN BECAUSE IT WAS CONTAINED IN THE INFUSION SET

REACTIONS (1)
  - Pyrexia [Recovered/Resolved]
